FAERS Safety Report 10078818 (Version 1)
Quarter: 2014Q2

REPORT INFORMATION
  Report Type: Spontaneous
  Country: US (occurrence: None)
  Receive Date: 20140414
  Receipt Date: 20140414
  Transmission Date: 20141212
  Serious: Yes (Hospitalization)
  Sender: FDA-Public Use
  Company Number: None

PATIENT
  Age: 4 Year
  Sex: Male
  Weight: 19 kg

DRUGS (3)
  1. PEG-L-ASPARAGINASE [Suspect]
  2. SEPTRA [Concomitant]
  3. ZOFRAN [Concomitant]

REACTIONS (3)
  - Infusion related reaction [None]
  - Diarrhoea [None]
  - Anaphylactic shock [None]
